FAERS Safety Report 23130853 (Version 1)
Quarter: 2023Q4

REPORT INFORMATION
  Report Type: Spontaneous
  Country: RU (occurrence: RU)
  Receive Date: 20231031
  Receipt Date: 20231031
  Transmission Date: 20240110
  Serious: Yes (Life-Threatening, Other)
  Sender: FDA-Public Use
  Company Number: RU-SANDOZ-SDZ2023RU039082

PATIENT
  Age: 80 Year

DRUGS (7)
  1. ATORVASTATIN [Suspect]
     Active Substance: ATORVASTATIN
     Indication: Ventricular extrasystoles
     Dosage: 10 MG, QD
     Route: 065
  2. ASPIRIN [Suspect]
     Active Substance: ASPIRIN
     Indication: Ventricular extrasystoles
     Dosage: 75 MG, QD
     Route: 065
  3. ETHACIZINE [Suspect]
     Active Substance: ETHACIZINE
     Indication: Ventricular extrasystoles
     Dosage: 150 MG PER DAY
     Route: 065
  4. PERINDOPRIL [Suspect]
     Active Substance: PERINDOPRIL
     Indication: Ventricular extrasystoles
     Dosage: 5 MG, QD
     Route: 065
  5. SOTALOL [Suspect]
     Active Substance: SOTALOL
     Indication: Ventricular extrasystoles
     Dosage: 160 MG PER DAY
     Route: 065
  6. SPIRONOLACTONE [Suspect]
     Active Substance: SPIRONOLACTONE
     Indication: Ventricular extrasystoles
     Dosage: 50 MG, QD
     Route: 065
  7. TORSEMIDE [Suspect]
     Active Substance: TORSEMIDE
     Indication: Ventricular extrasystoles
     Dosage: 5 MG, QD
     Route: 065

REACTIONS (3)
  - Ventricular tachycardia [Unknown]
  - Acute myocardial infarction [Unknown]
  - Contraindicated product administered [Unknown]

NARRATIVE: CASE EVENT DATE: 20220101
